FAERS Safety Report 5951888-4 (Version None)
Quarter: 2008Q4

REPORT INFORMATION
  Report Type: 
  Country: None (occurrence: None)
  Receive Date: 20081113
  Receipt Date: 20081103
  Transmission Date: 20090506
  Serious: Yes (Life-Threatening, Hospitalization, Other)
  Sender: FDA-Public Use
  Company Number: GB-BAXTER-2008BH011775

PATIENT
  Age: 74 Year
  Sex: Female

DRUGS (9)
  1. CYCLOPHOSPHAMIDE [Suspect]
     Indication: CHRONIC LYMPHOCYTIC LEUKAEMIA
     Dosage: DOSE UNIT:UNKNOWN
     Route: 065
     Dates: start: 20080101, end: 20080101
  2. FLUDARABINE PHOSPHATE [Suspect]
     Indication: B-CELL SMALL LYMPHOCYTIC LYMPHOMA
     Dosage: DOSE UNIT:UNKNOWN
     Route: 065
     Dates: start: 20080101, end: 20080101
  3. ALEMTUZUMAB [Suspect]
     Indication: B-CELL SMALL LYMPHOCYTIC LYMPHOMA
     Route: 065
     Dates: start: 20080826, end: 20080826
  4. ALEMTUZUMAB [Suspect]
     Route: 065
     Dates: start: 20080827, end: 20080827
  5. ALEMTUZUMAB [Suspect]
     Route: 065
     Dates: start: 20080828, end: 20080828
  6. CHLORAMBUCIL [Concomitant]
     Indication: CHRONIC LYMPHOCYTIC LEUKAEMIA
  7. ACYCLOVIR [Concomitant]
     Indication: PROPHYLAXIS
  8. CO-TRIMOXAZOLE [Concomitant]
     Indication: PROPHYLAXIS
  9. CYCLOPHOSPHAMIDE [Concomitant]
     Indication: CHRONIC LYMPHOCYTIC LEUKAEMIA
     Dates: start: 20080101, end: 20080101

REACTIONS (4)
  - DRUG INEFFECTIVE [None]
  - LYMPHOPENIA [None]
  - PANCYTOPENIA [None]
  - THROMBOCYTOPENIA [None]
